FAERS Safety Report 9134682 (Version 3)
Quarter: 2013Q1

REPORT INFORMATION
  Report Type: Spontaneous
  Country: US (occurrence: US)
  Receive Date: 20130304
  Receipt Date: 20130315
  Transmission Date: 20140127
  Serious: Yes (Hospitalization, Other)
  Sender: FDA-Public Use
  Company Number: PHEH2013US004836

PATIENT
  Age: 54 Year
  Sex: Female

DRUGS (3)
  1. GILENYA [Suspect]
     Indication: RELAPSING-REMITTING MULTIPLE SCLEROSIS
     Dosage: 0.5 MG, QD
     Route: 048
     Dates: start: 201105, end: 20130224
  2. LISINOPRIL [Concomitant]
     Indication: HYPERTENSION
  3. HYDROCHLOROTHIAZIDE [Concomitant]
     Indication: HYPERTENSION

REACTIONS (27)
  - Sepsis [Unknown]
  - Blood pressure decreased [Unknown]
  - Heart rate decreased [Unknown]
  - Blood creatine phosphokinase increased [Unknown]
  - Confusional state [Unknown]
  - Somnolence [Unknown]
  - Malaise [Unknown]
  - CSF test abnormal [Unknown]
  - CSF glucose decreased [Unknown]
  - CSF white blood cell count positive [Unknown]
  - CSF protein increased [Unknown]
  - Blood albumin decreased [Unknown]
  - Decubitus ulcer [Unknown]
  - Pleural effusion [Unknown]
  - Atrial fibrillation [Recovered/Resolved]
  - Lymphocyte count decreased [Recovering/Resolving]
  - T-lymphocyte count decreased [Recovering/Resolving]
  - CD4 lymphocytes decreased [Recovering/Resolving]
  - CD8 lymphocytes decreased [Recovering/Resolving]
  - CD4/CD8 ratio decreased [Recovering/Resolving]
  - Haemoglobin decreased [Unknown]
  - Haematocrit decreased [Unknown]
  - Blood bilirubin increased [Unknown]
  - Pulmonary hypertension [Unknown]
  - Osteomyelitis [Unknown]
  - Aspartate aminotransferase increased [Unknown]
  - White blood cell count decreased [Unknown]
